FAERS Safety Report 8161488-6 (Version None)
Quarter: 2012Q1

REPORT INFORMATION
  Report Type: 
  Country: None (occurrence: None)
  Receive Date: 20120224
  Receipt Date: 20120216
  Transmission Date: 20120608
  Serious: Yes (Other)
  Sender: FDA-Public Use
  Company Number: US-COVIDIEN/TYCO HEALTHCARE/MALLINCKRODT-T201200647

PATIENT
  Age: 53 Year
  Sex: Male

DRUGS (8)
  1. OXYCODONE HCL [Suspect]
     Indication: PAIN
     Dosage: 5 MG Q6 PRN
  2. CYMBALTA [Suspect]
     Indication: DEPRESSION
     Dosage: 60 MG, QD
  3. PREGABALIN [Concomitant]
     Dosage: 75 MG, BID
  4. HYDROMORPHONE HCL [Suspect]
     Indication: PAIN
     Dosage: UNK, PRN
  5. BUPROPION HCL [Suspect]
     Dosage: 300 MG, QD
  6. GENERAL ANESTHESIA [Concomitant]
     Indication: SURGERY
  7. VANCOMYCIN [Concomitant]
     Indication: INFECTION
  8. CYCLOBENZAPRINE [Suspect]
     Dosage: 10 MG, TID

REACTIONS (1)
  - SEROTONIN SYNDROME [None]
